FAERS Safety Report 17839506 (Version 1)
Quarter: 2020Q2

REPORT INFORMATION
  Report Type: Spontaneous
  Country: US (occurrence: US)
  Receive Date: 20200529
  Receipt Date: 20200529
  Transmission Date: 20200714
  Serious: No
  Sender: FDA-Public Use
  Company Number: US-ACCORD-127258

PATIENT
  Age: 67 Year
  Sex: Female

DRUGS (1)
  1. CLONAZEPAM ACCORD [Suspect]
     Active Substance: CLONAZEPAM
     Indication: PRODUCT USED FOR UNKNOWN INDICATION
     Dosage: STRENGTH: 2 MG

REACTIONS (8)
  - Confusional state [Unknown]
  - Depressed mood [Unknown]
  - Drug ineffective [Unknown]
  - Insomnia [Unknown]
  - Mental status changes [Unknown]
  - Product substitution issue [Unknown]
  - Panic attack [Unknown]
  - Fear [Unknown]
